FAERS Safety Report 7597064-3 (Version None)
Quarter: 2011Q3

REPORT INFORMATION
  Report Type: 
  Country: None (occurrence: None)
  Receive Date: 20110708
  Receipt Date: 20110627
  Transmission Date: 20111222
  Serious: Yes (Other)
  Sender: FDA-Public Use
  Company Number: GB-PFIZER INC-2011144065

PATIENT
  Age: 51 Year
  Sex: Female

DRUGS (8)
  1. RITONAVIR [Suspect]
     Indication: ANTIRETROVIRAL THERAPY
     Dosage: 100 MG, 1X/DAY
  2. DEXAMETHASONE SODIUM PHOSPHATE [Suspect]
     Indication: UVEITIS
  3. TRUVADA [Concomitant]
     Indication: ANTIRETROVIRAL THERAPY
     Dosage: UNK
  4. BETAMETHASONE [Suspect]
     Indication: UVEITIS
  5. DEXAMETHASONE SODIUM PHOSPHATE [Suspect]
     Indication: CYTOMEGALOVIRUS CHORIORETINITIS
     Dosage: 0.1 %,  SIX TIMES DAILY
  6. BETAMETHASONE [Suspect]
     Indication: CYTOMEGALOVIRUS CHORIORETINITIS
     Dosage: 0.1 % AT NIGHT
  7. ATAZANAVIR [Concomitant]
     Indication: ANTIRETROVIRAL THERAPY
     Dosage: 300 MG, 1X/DAY
  8. BETAMETHASONE [Suspect]
     Indication: MACULAR OEDEMA

REACTIONS (3)
  - ADRENAL SUPPRESSION [None]
  - CUSHING'S SYNDROME [None]
  - OSTEONECROSIS [None]
